FAERS Safety Report 13590861 (Version 1)
Quarter: 2017Q2

REPORT INFORMATION
  Report Type: Report from Study
  Country: CA (occurrence: CA)
  Receive Date: 20170529
  Receipt Date: 20170529
  Transmission Date: 20170830
  Serious: Yes (Hospitalization, Other)
  Sender: FDA-Public Use
  Company Number: CA-ROCHE-1935535

PATIENT
  Age: 86 Year
  Sex: Female

DRUGS (13)
  1. PARIET [Concomitant]
     Active Substance: RABEPRAZOLE SODIUM
  2. TIAZAC (CANADA) [Concomitant]
  3. DIABETA (CANADA) [Concomitant]
  4. ESBRIET [Suspect]
     Active Substance: PIRFENIDONE
     Indication: IDIOPATHIC PULMONARY FIBROSIS
     Dosage: PILLA
     Route: 048
     Dates: start: 20170423, end: 20170513
  5. ESBRIET [Suspect]
     Active Substance: PIRFENIDONE
     Route: 048
     Dates: start: 20170507
  6. VENTOLIN [Concomitant]
     Active Substance: ALBUTEROL SULFATE
  7. METFORMIN [Concomitant]
     Active Substance: METFORMIN HYDROCHLORIDE
  8. TYLENOL WITH CODEINE [Concomitant]
     Active Substance: ACETAMINOPHEN\CODEINE PHOSPHATE
  9. ADVAIR HFA [Concomitant]
     Active Substance: FLUTICASONE PROPIONATE\SALMETEROL XINAFOATE
  10. LASIX [Concomitant]
     Active Substance: FUROSEMIDE
  11. ELAVIL [Concomitant]
     Active Substance: AMITRIPTYLINE HYDROCHLORIDE
  12. ACETYLSALICYLIC ACID [Concomitant]
     Active Substance: ASPIRIN
  13. ELTROXIN [Concomitant]
     Active Substance: LEVOTHYROXINE

REACTIONS (6)
  - Renal impairment [Unknown]
  - Dizziness [Unknown]
  - Malaise [Unknown]
  - Decreased appetite [Unknown]
  - Myocardial infarction [Recovering/Resolving]
  - Dehydration [Unknown]

NARRATIVE: CASE EVENT DATE: 201705
